FAERS Safety Report 13781295 (Version 1)
Quarter: 2017Q3

REPORT INFORMATION
  Report Type: Spontaneous
  Country: US (occurrence: US)
  Receive Date: 20170724
  Receipt Date: 20170724
  Transmission Date: 20171127
  Serious: No
  Sender: FDA-Public Use
  Company Number: US-BAYER-2017-136918

PATIENT
  Sex: Female

DRUGS (2)
  1. CLARITIN [Suspect]
     Active Substance: LORATADINE
     Indication: PAIN PROPHYLAXIS
     Route: 048
  2. CLARITIN [Suspect]
     Active Substance: LORATADINE
     Indication: VERTIGO

REACTIONS (2)
  - Off label use [Unknown]
  - Product use in unapproved indication [Unknown]
